FAERS Safety Report 5068248-3 (Version None)
Quarter: 2006Q3

REPORT INFORMATION
  Report Type: 
  Country: None (occurrence: None)
  Receive Date: 20060802
  Receipt Date: 20050622
  Transmission Date: 20061208
  Serious: Yes (Other)
  Sender: FDA-Public Use
  Company Number: US-BRISTOL-MYERS SQUIBB COMPANY-13012257

PATIENT
  Sex: Female

DRUGS (5)
  1. COUMADIN [Suspect]
     Indication: ATRIAL FIBRILLATION
     Dosage: ON VARYING DOSES FOR SEVERAL YRS;INCREASE TO 5MG X 3 DAYS + 2.5MG X 4 DAYS;5MG X 5 DAYS + 2.5 X 2DAY
     Route: 048
  2. DIGOXIN [Concomitant]
  3. TIAZAC [Concomitant]
  4. MICRO-K [Concomitant]
  5. DARVOCET [Concomitant]

REACTIONS (1)
  - INTERNATIONAL NORMALISED RATIO DECREASED [None]
